FAERS Safety Report 11943714 (Version 1)
Quarter: 2016Q1

REPORT INFORMATION
  Report Type: Spontaneous
  Country: US (occurrence: US)
  Receive Date: 20160125
  Receipt Date: 20160125
  Transmission Date: 20160526
  Serious: No
  Sender: FDA-Public Use
  Company Number: US-UNITED THERAPEUTICS-UNT-2015-010879

PATIENT
  Sex: Female
  Weight: 73.47 kg

DRUGS (4)
  1. REVATIO [Concomitant]
     Active Substance: SILDENAFIL CITRATE
     Indication: PRODUCT USED FOR UNKNOWN INDICATION
  2. ORENITRAM [Suspect]
     Active Substance: TREPROSTINIL
     Indication: PULMONARY HYPERTENSION
     Dosage: 0.875 MG, TID
     Route: 048
     Dates: start: 20150226
  3. ORENITRAM [Suspect]
     Active Substance: TREPROSTINIL
     Indication: PULMONARY ARTERIAL HYPERTENSION
     Dosage: UNK
     Route: 048
  4. LETAIRIS [Suspect]
     Active Substance: AMBRISENTAN
     Indication: PRODUCT USED FOR UNKNOWN INDICATION
     Dosage: 10 MG, QD
     Route: 065
     Dates: start: 20110114

REACTIONS (6)
  - Nausea [Unknown]
  - Condition aggravated [Not Recovered/Not Resolved]
  - Abdominal pain [Unknown]
  - Pancreatic cyst [Unknown]
  - Dyspnoea exertional [Unknown]
  - Vomiting [Unknown]

NARRATIVE: CASE EVENT DATE: 2015
